FAERS Safety Report 9612464 (Version 4)
Quarter: 2013Q4

REPORT INFORMATION
  Report Type: Spontaneous
  Country: BR (occurrence: BR)
  Receive Date: 20131010
  Receipt Date: 20131125
  Transmission Date: 20140711
  Serious: Yes (Other)
  Sender: FDA-Public Use
  Company Number: BR-NOVOPROD-389368

PATIENT
  Sex: Female
  Weight: 71 kg

DRUGS (3)
  1. NOVOLIN N PENFILL [Suspect]
     Indication: TYPE 2 DIABETES MELLITUS
     Dosage: 36 IU, QD(20 IU OF NOVOLIN N IN THE MORNING + 16 IU AT NIGHT)
     Route: 058
     Dates: start: 201308
  2. NOVOLIN N PENFILL [Suspect]
     Dosage: 64 IU, QD(44 IU IN THE MORNING + 20 IU AT NIGHT)
     Route: 058
     Dates: start: 201309
  3. DIOVAN AMLO [Concomitant]
     Indication: HYPERTENSION
     Dosage: 1 TAB
     Route: 048
     Dates: start: 2009

REACTIONS (6)
  - Syncope [Recovered/Resolved]
  - Amnesia [Unknown]
  - Device breakage [Unknown]
  - Diabetes mellitus inadequate control [Recovered/Resolved]
  - Injection site haemorrhage [Unknown]
  - Injection site bruising [Unknown]
